FAERS Safety Report 20048154 (Version 1)
Quarter: 2021Q4

REPORT INFORMATION
  Report Type: Report from Study
  Country: FR (occurrence: FR)
  Receive Date: 20211109
  Receipt Date: 20211109
  Transmission Date: 20220303
  Serious: Yes (Other)
  Sender: FDA-Public Use
  Company Number: FR-PFIZER INC-202101456912

PATIENT
  Age: 60 Year
  Sex: Female
  Weight: 53 kg

DRUGS (16)
  1. INOTUZUMAB OZOGAMICIN [Suspect]
     Active Substance: INOTUZUMAB OZOGAMICIN
     Dosage: 1.22 MG, D1, INDUCTION I
     Dates: start: 20210730
  2. INOTUZUMAB OZOGAMICIN [Suspect]
     Active Substance: INOTUZUMAB OZOGAMICIN
     Dosage: 1.22 MG, D8, INDUCTION I
     Dates: start: 20210805
  3. INOTUZUMAB OZOGAMICIN [Suspect]
     Active Substance: INOTUZUMAB OZOGAMICIN
     Dosage: 0.76 MG, D15, INDUCTION I
     Dates: start: 20210812
  4. INOTUZUMAB OZOGAMICIN [Suspect]
     Active Substance: INOTUZUMAB OZOGAMICIN
     Dosage: 0.76 MG, D1, INDUCTION II
     Dates: start: 20210831
  5. INOTUZUMAB OZOGAMICIN [Suspect]
     Active Substance: INOTUZUMAB OZOGAMICIN
     Dosage: 0.76 MG, D8, INDUCTION II
     Dates: start: 20210914
  6. METHOTREXATE SODIUM [Suspect]
     Active Substance: METHOTREXATE SODIUM
     Dosage: 15 MG, D2, INDUCTION I
     Dates: start: 20210731
  7. METHOTREXATE SODIUM [Suspect]
     Active Substance: METHOTREXATE SODIUM
     Dosage: 15 MG, D2, INDUCTION II
     Dates: start: 20210901
  8. VINCRISTINE SULFATE [Suspect]
     Active Substance: VINCRISTINE SULFATE
     Dosage: 2 MG, D1, INDUCTION I
     Dates: start: 20210730
  9. VINCRISTINE SULFATE [Suspect]
     Active Substance: VINCRISTINE SULFATE
     Dosage: 2 MG, D8, INDUCTION I
     Dates: start: 20210805
  10. VINCRISTINE SULFATE [Suspect]
     Active Substance: VINCRISTINE SULFATE
     Dosage: 2 MG, D15, INDUCTION I
     Dates: start: 20210812
  11. VINCRISTINE SULFATE [Suspect]
     Active Substance: VINCRISTINE SULFATE
     Dosage: 2 MG, D22, INDUCTION I
     Dates: start: 20210819
  12. CYTARABINE [Suspect]
     Active Substance: CYTARABINE
     Dosage: 40 MG, D2, INDUCTION I
     Dates: start: 20210731
  13. CYTARABINE [Suspect]
     Active Substance: CYTARABINE
     Dosage: 40 MG, D2, INDUCTION II
     Dates: start: 20210902
  14. CYCLOPHOSPHAMIDE [Suspect]
     Active Substance: CYCLOPHOSPHAMIDE
     Dosage: 460 MG, D1, INDUCTION II
     Dates: start: 20210831
  15. CYCLOPHOSPHAMIDE [Suspect]
     Active Substance: CYCLOPHOSPHAMIDE
     Dosage: 460 MG, D2, INDUCTION II
     Dates: start: 20210901
  16. CYCLOPHOSPHAMIDE [Suspect]
     Active Substance: CYCLOPHOSPHAMIDE
     Dosage: 460 MG, D3, INDUCTION II
     Dates: start: 20210902

REACTIONS (1)
  - Cholestasis [Not Recovered/Not Resolved]

NARRATIVE: CASE EVENT DATE: 20210905
